FAERS Safety Report 15597369 (Version 1)
Quarter: 2018Q4

REPORT INFORMATION
  Report Type: Spontaneous
  Country: US (occurrence: US)
  Receive Date: 20181108
  Receipt Date: 20181108
  Transmission Date: 20190205
  Serious: Yes (Other)
  Sender: FDA-Public Use
  Company Number: US-TEVA-2018-US-971079

PATIENT
  Sex: Female

DRUGS (1)
  1. VALSARTAN. [Suspect]
     Active Substance: VALSARTAN
     Indication: HYPERTENSION
     Dosage: DOSE STRENGTH: 40
     Route: 065
     Dates: end: 201807

REACTIONS (2)
  - Skin papilloma [Not Recovered/Not Resolved]
  - Precancerous skin lesion [Not Recovered/Not Resolved]
